FAERS Safety Report 9236468 (Version 1)
Quarter: 2013Q2

REPORT INFORMATION
  Report Type: Spontaneous
  Country: GR (occurrence: GR)
  Receive Date: 20130417
  Receipt Date: 20130417
  Transmission Date: 20140414
  Serious: Yes (Other)
  Sender: FDA-Public Use
  Company Number: GR-PFIZER INC-2013119239

PATIENT
  Age: 19 Year
  Sex: Male

DRUGS (2)
  1. PREGABALIN [Suspect]
     Indication: GENERALISED ANXIETY DISORDER
     Dosage: TITRATED TO MAXIMUM DOSE OF 600 MG
  2. PREGABALIN [Suspect]
     Indication: ALCOHOL ABUSE
     Dosage: 1800 MG/DAY

REACTIONS (2)
  - Drug abuse [Unknown]
  - Euphoric mood [Unknown]
